FAERS Safety Report 7304574-2 (Version None)
Quarter: 2011Q1

REPORT INFORMATION
  Report Type: 
  Country: None (occurrence: None)
  Receive Date: 20110222
  Receipt Date: 20101216
  Transmission Date: 20110831
  Serious: Yes (Other)
  Sender: FDA-Public Use
  Company Number: PHHY2010HU90598

PATIENT
  Age: 62 Year
  Sex: Female

DRUGS (5)
  1. SINCUMAR [Concomitant]
     Dosage: UNK
     Dates: start: 20000101
  2. ADEXOR [Concomitant]
  3. ACLASTA [Suspect]
     Indication: OSTEOPOROSIS
     Dosage: 5 MG,
     Dates: start: 20090101
  4. ACLASTA [Suspect]
     Dosage: 5 MG,
     Dates: start: 20100701
  5. LEVOTHYROXINE [Concomitant]
     Dosage: UNK
     Dates: start: 19880101

REACTIONS (6)
  - BLUNTED AFFECT [None]
  - HOT FLUSH [None]
  - TREMOR [None]
  - CONFUSIONAL STATE [None]
  - RETINAL HAEMORRHAGE [None]
  - DIZZINESS [None]
